FAERS Safety Report 9697440 (Version 1)
Quarter: 2013Q4

REPORT INFORMATION
  Report Type: Spontaneous
  Country: US (occurrence: US)
  Receive Date: 20131120
  Receipt Date: 20131120
  Transmission Date: 20140711
  Serious: Yes (Hospitalization)
  Sender: FDA-Public Use
  Company Number: US-BAYER-2013-140642

PATIENT
  Age: 37 Year
  Sex: Female
  Weight: 89.94 kg

DRUGS (3)
  1. YAZ [Suspect]
  2. YASMIN [Suspect]
  3. MULTIVITAMINS [Concomitant]

REACTIONS (3)
  - Pulmonary embolism [Recovered/Resolved]
  - Thrombophlebitis superficial [None]
  - Deep vein thrombosis [None]
